FAERS Safety Report 8794376 (Version 1)
Quarter: 2012Q4

REPORT INFORMATION
  Report Type: 
  Country: MX (occurrence: MX)
  Receive Date: 20120917
  Receipt Date: 20120917
  Transmission Date: 20130627
  Serious: Yes (Other)
  Sender: FDA-Public Use
  Company Number: MX-PFIZER INC-2012228145

PATIENT

DRUGS (2)
  1. LIPITOR [Suspect]
     Dosage: 40 mg, UNK
     Route: 048
  2. LIPITOR [Suspect]
     Dosage: 20 mg, UNK
     Route: 048

REACTIONS (1)
  - Hepatic steatosis [Unknown]
